FAERS Safety Report 20976523 (Version 1)
Quarter: 2022Q2

REPORT INFORMATION
  Report Type: Spontaneous
  Country: CA (occurrence: CA)
  Receive Date: 20220617
  Receipt Date: 20220617
  Transmission Date: 20220720
  Serious: Yes (Life-Threatening, Hospitalization, Other)
  Sender: FDA-Public Use
  Company Number: CA-JNJFOC-20220626440

PATIENT
  Age: 46 Year
  Sex: Male

DRUGS (12)
  1. RISPERDAL CONSTA [Suspect]
     Active Substance: RISPERIDONE
     Indication: Schizophrenia
     Route: 030
  2. RISPERDAL CONSTA [Suspect]
     Active Substance: RISPERIDONE
  3. RISPERDAL CONSTA [Suspect]
     Active Substance: RISPERIDONE
  4. RISPERDAL CONSTA [Suspect]
     Active Substance: RISPERIDONE
  5. BUSPIRONE [Concomitant]
     Active Substance: BUSPIRONE HYDROCHLORIDE
     Route: 065
  6. IPRATROPIUM [Concomitant]
     Active Substance: IPRATROPIUM
  7. METHADONE [Concomitant]
     Active Substance: METHADONE HYDROCHLORIDE
  8. METHYLPHENIDATE [Concomitant]
     Active Substance: METHYLPHENIDATE
  9. PROPRANOLOL [Concomitant]
     Active Substance: PROPRANOLOL HYDROCHLORIDE
  10. ALBUTEROL [Concomitant]
     Active Substance: ALBUTEROL
  11. TEMAZEPAM [Concomitant]
     Active Substance: TEMAZEPAM
     Route: 065
  12. VALPROIC ACID [Concomitant]
     Active Substance: VALPROIC ACID

REACTIONS (4)
  - Loss of consciousness [Not Recovered/Not Resolved]
  - Status epilepticus [Not Recovered/Not Resolved]
  - Epilepsy [Not Recovered/Not Resolved]
  - Endotracheal intubation [Not Recovered/Not Resolved]
